FAERS Safety Report 9624177 (Version 4)
Quarter: 2013Q4

REPORT INFORMATION
  Report Type: Report from Study
  Country: TW (occurrence: TW)
  Receive Date: 20131015
  Receipt Date: 20131206
  Transmission Date: 20140711
  Serious: Yes (Hospitalization)
  Sender: FDA-Public Use
  Company Number: TW-GLAXOSMITHKLINE-Z0021372A

PATIENT
  Age: 51 Year
  Sex: Female
  Weight: 61.4 kg

DRUGS (3)
  1. BELIMUMAB [Suspect]
     Indication: SYSTEMIC LUPUS ERYTHEMATOSUS
     Dosage: 10MGK CYCLIC
     Route: 042
     Dates: start: 20130918, end: 20130918
  2. HYDROXYCHLOROQUINE [Concomitant]
     Dosage: 200MG PER DAY
  3. PREDNISOLONE [Concomitant]
     Dosage: 500MG TWICE PER DAY

REACTIONS (1)
  - Colitis [Recovered/Resolved]
